FAERS Safety Report 23307530 (Version 3)
Quarter: 2024Q1

REPORT INFORMATION
  Report Type: Spontaneous
  Country: JP (occurrence: JP)
  Receive Date: 20231218
  Receipt Date: 20240304
  Transmission Date: 20240410
  Serious: Yes (Hospitalization, Other)
  Sender: FDA-Public Use
  Company Number: JP-002147023-NVSJ2023JP017529

PATIENT
  Age: 58 Year
  Sex: Male

DRUGS (2)
  1. COSENTYX [Suspect]
     Active Substance: SECUKINUMAB
     Indication: Pustular psoriasis
     Dosage: UNK
     Route: 058
  2. COSENTYX [Suspect]
     Active Substance: SECUKINUMAB
     Dosage: UNK, EVERY 4 WEEKS
     Route: 058

REACTIONS (19)
  - Bladder cancer [Unknown]
  - Bladder cancer recurrent [Recovered/Resolved]
  - Urinary tract infection [Recovering/Resolving]
  - Cholangitis sclerosing [Recovering/Resolving]
  - Cholestasis [Recovering/Resolving]
  - Hyperbilirubinaemia [Recovering/Resolving]
  - Yellow skin [Unknown]
  - Ocular icterus [Unknown]
  - Pustular psoriasis [Recovering/Resolving]
  - Dermatitis exfoliative generalised [Unknown]
  - Pustule [Unknown]
  - Pyrexia [Unknown]
  - Erythema [Unknown]
  - Blood pressure decreased [Unknown]
  - Dyspnoea [Unknown]
  - Condition aggravated [Recovering/Resolving]
  - White blood cell count increased [Recovering/Resolving]
  - C-reactive protein increased [Recovering/Resolving]
  - Procalcitonin increased [Recovering/Resolving]
